FAERS Safety Report 7365413-7 (Version None)
Quarter: 2011Q1

REPORT INFORMATION
  Report Type: 
  Country: None (occurrence: None)
  Receive Date: 20110322
  Receipt Date: 20110316
  Transmission Date: 20110831
  Serious: Yes (Other)
  Sender: FDA-Public Use
  Company Number: US-ROCHE-579677

PATIENT
  Sex: Male
  Weight: 77.6 kg

DRUGS (7)
  1. ACCUTANE [Suspect]
     Route: 048
     Dates: start: 20051018, end: 20060225
  2. TAC [Concomitant]
     Indication: ECZEMA
     Dates: start: 20031202
  3. ACCUTANE [Suspect]
     Route: 048
     Dates: start: 20040122, end: 20040222
  4. KEFLEX [Concomitant]
     Indication: ACNE
     Route: 065
     Dates: start: 20031202
  5. ACCUTANE [Suspect]
     Route: 048
     Dates: start: 20031203, end: 20040121
  6. ACCUTANE [Suspect]
     Route: 048
     Dates: start: 20050919, end: 20051017
  7. ACCUTANE [Suspect]
     Route: 048
     Dates: start: 20040223, end: 20040326

REACTIONS (18)
  - DEPRESSION [None]
  - INFLAMMATORY BOWEL DISEASE [None]
  - ILEITIS [None]
  - MYALGIA [None]
  - LIP DRY [None]
  - CHAPPED LIPS [None]
  - DEHYDRATION [None]
  - ABDOMINAL PAIN [None]
  - DRY SKIN [None]
  - DEPRESSED MOOD [None]
  - NASAL DRYNESS [None]
  - COLITIS [None]
  - ARTHRALGIA [None]
  - DRY EYE [None]
  - EPISTAXIS [None]
  - INTESTINAL HAEMORRHAGE [None]
  - SUICIDAL IDEATION [None]
  - BLOOD TRIGLYCERIDES INCREASED [None]
